FAERS Safety Report 8615406-4 (Version None)
Quarter: 2012Q3

REPORT INFORMATION
  Report Type: 
  Country: None (occurrence: None)
  Receive Date: 20120823
  Receipt Date: 20120814
  Transmission Date: 20120928
  Serious: Yes (Other)
  Sender: FDA-Public Use
  Company Number: GB-JNJFOC-20120806178

PATIENT
  Sex: Female

DRUGS (3)
  1. REMICADE [Suspect]
     Indication: CROHN'S DISEASE
     Route: 042
     Dates: start: 20100301
  2. REMICADE [Suspect]
     Route: 042
     Dates: start: 20120807
  3. REMICADE [Suspect]
     Route: 042
     Dates: start: 20120101

REACTIONS (3)
  - PALPITATIONS [None]
  - SURGERY [None]
  - DIZZINESS [None]
